FAERS Safety Report 16338270 (Version 3)
Quarter: 2019Q2

REPORT INFORMATION
  Report Type: Spontaneous
  Country: US (occurrence: US)
  Receive Date: 20190521
  Receipt Date: 20190614
  Transmission Date: 20190711
  Serious: No
  Sender: FDA-Public Use
  Company Number: US-009507513-1905USA009222

PATIENT
  Sex: Female

DRUGS (4)
  1. ASMANEX [Suspect]
     Active Substance: MOMETASONE FUROATE
     Dosage: 2 PUFFS IN AM, 2 PUFFS IN PM
     Route: 048
     Dates: start: 2019
  2. VENTOLIN [Concomitant]
     Active Substance: ALBUTEROL SULFATE
  3. ASMANEX [Suspect]
     Active Substance: MOMETASONE FUROATE
     Indication: ASTHMA
     Dosage: 2 PUFFS IN AM, 2 PUFFS IN PM
     Route: 055
     Dates: start: 2019
  4. ASMANEX [Suspect]
     Active Substance: MOMETASONE FUROATE
     Dosage: 2 PUFFS IN AM, 2 PUFFS IN PM
     Route: 048
     Dates: start: 201905

REACTIONS (6)
  - Wheezing [Not Recovered/Not Resolved]
  - Product taste abnormal [Unknown]
  - Cough [Not Recovered/Not Resolved]
  - Poor quality device used [Unknown]
  - Product quality issue [Unknown]
  - Incorrect dose administered [Unknown]

NARRATIVE: CASE EVENT DATE: 2019
